FAERS Safety Report 4993330-6 (Version None)
Quarter: 2006Q2

REPORT INFORMATION
  Report Type: 
  Country: None (occurrence: None)
  Receive Date: 20060505
  Receipt Date: 20060104
  Transmission Date: 20061013
  Serious: Yes (Hospitalization)
  Sender: FDA-Public Use
  Company Number: 2006PK00082

PATIENT
  Age: 19261 Day
  Sex: Female

DRUGS (2)
  1. NOLVADEX [Suspect]
     Dates: start: 19991201, end: 20050101
  2. ARIMIDEX [Suspect]
     Indication: BREAST CANCER
     Route: 048
     Dates: start: 20050315

REACTIONS (2)
  - ECTROPION OF CERVIX [None]
  - ENDOMETRIAL HYPERPLASIA [None]
